FAERS Safety Report 9277816 (Version 2)
Quarter: 2013Q3

REPORT INFORMATION
  Report Type: Spontaneous
  Country: BR (occurrence: BR)
  Receive Date: 20130508
  Receipt Date: 20130708
  Transmission Date: 20140515
  Serious: Yes (Other)
  Sender: FDA-Public Use
  Company Number: PHHY2013BR045064

PATIENT
  Sex: Male
  Weight: 30 kg

DRUGS (1)
  1. RITALINA [Suspect]
     Indication: ATTENTION DEFICIT/HYPERACTIVITY DISORDER
     Dosage: TWO TABLETS
     Route: 048
     Dates: start: 2007

REACTIONS (6)
  - Bipolar disorder [Recovering/Resolving]
  - Logorrhoea [Recovered/Resolved]
  - Headache [Recovering/Resolving]
  - Agitation [Not Recovered/Not Resolved]
  - Disturbance in attention [Not Recovered/Not Resolved]
  - Drug administered to patient of inappropriate age [Unknown]
